FAERS Safety Report 6488021-9 (Version None)
Quarter: 2009Q4

REPORT INFORMATION
  Report Type: 
  Country: None (occurrence: None)
  Receive Date: 20091210
  Receipt Date: 20091202
  Transmission Date: 20100525
  Serious: Yes (Other)
  Sender: FDA-Public Use
  Company Number: PHHY2009CA51165

PATIENT
  Sex: Female

DRUGS (6)
  1. ACLASTA [Suspect]
     Indication: OSTEOPOROSIS
     Dosage: 5 MG, UNK
     Dates: start: 20090911
  2. PREMARIN [Concomitant]
  3. OXAZEPAM [Concomitant]
  4. NEURONTIN [Concomitant]
  5. PANTOPRAZOLE [Concomitant]
  6. DOMPERIDONE [Concomitant]

REACTIONS (8)
  - BEDRIDDEN [None]
  - HYPERHIDROSIS [None]
  - HYPOTENSION [None]
  - LOSS OF CONSCIOUSNESS [None]
  - MIGRAINE [None]
  - NEUROGENIC SHOCK [None]
  - PALPITATIONS [None]
  - PRESYNCOPE [None]
